FAERS Safety Report 7684347-1 (Version None)
Quarter: 2011Q3

REPORT INFORMATION
  Report Type: 
  Country: None (occurrence: None)
  Receive Date: 20110816
  Receipt Date: 20110809
  Transmission Date: 20111222
  Serious: Yes (Death)
  Sender: FDA-Public Use
  Company Number: JP-BRISTOL-MYERS SQUIBB COMPANY-15962913

PATIENT
  Age: 74 Year
  Sex: Male

DRUGS (3)
  1. CISPLATIN [Suspect]
     Indication: GASTRIC CANCER
     Dosage: 88MG*1/MONTH(TOTAL 1 DOSE)
     Route: 041
     Dates: start: 20110727
  2. HERCEPTIN [Suspect]
     Indication: GASTRIC CANCER
     Dosage: TOTAL 1 DOSE
     Dates: start: 20110725
  3. TS-1 [Suspect]
     Indication: GASTRIC CANCER
     Dates: start: 20110725, end: 20110807

REACTIONS (2)
  - RENAL DISORDER [None]
  - PANCYTOPENIA [None]
